FAERS Safety Report 5193441-9 (Version None)
Quarter: 2006Q4

REPORT INFORMATION
  Report Type: 
  Country: None (occurrence: None)
  Receive Date: 20061228
  Receipt Date: 20060420
  Transmission Date: 20070319
  Serious: No
  Sender: FDA-Public Use
  Company Number: US-GLAXOSMITHKLINE-A0602619A

PATIENT
  Age: 13 Day
  Sex: Male

DRUGS (2)
  1. FLONASE [Suspect]
     Indication: EAR INFECTION
     Dosage: 2SPR TWICE PER DAY
     Route: 045
     Dates: start: 20060214, end: 20060215
  2. AMOXICILLIN [Concomitant]

REACTIONS (3)
  - ILL-DEFINED DISORDER [None]
  - NASAL DISORDER [None]
  - PRODUCTIVE COUGH [None]
